FAERS Safety Report 5153104-2 (Version None)
Quarter: 2006Q4

REPORT INFORMATION
  Report Type: 
  Country: None (occurrence: None)
  Receive Date: 20061117
  Receipt Date: 20061027
  Transmission Date: 20070319
  Serious: Yes (Life-Threatening, Hospitalization, Other)
  Sender: FDA-Public Use
  Company Number: US-GLAXOSMITHKLINE-A0625375A

PATIENT
  Age: 35 Year
  Sex: Female
  Weight: 83.6 kg

DRUGS (5)
  1. LAMICTAL [Suspect]
     Indication: BIPOLAR II DISORDER
     Route: 048
  2. KLONOPIN [Concomitant]
     Dosage: 1MG TWICE PER DAY
     Route: 048
  3. DOXEPIN HCL [Concomitant]
     Dosage: 50MG AT NIGHT
     Route: 048
  4. RISPERIDONE [Concomitant]
     Dosage: 1MG AT NIGHT
     Route: 048
  5. PROVIGIL [Concomitant]
     Dosage: 200MG IN THE MORNING
     Route: 048

REACTIONS (8)
  - DRUG DOSE OMISSION [None]
  - DYSPHAGIA [None]
  - DYSPNOEA [None]
  - LOCAL SWELLING [None]
  - MOUTH ULCERATION [None]
  - PHARYNGOLARYNGEAL PAIN [None]
  - RASH [None]
  - TREATMENT NONCOMPLIANCE [None]
